FAERS Safety Report 10044351 (Version 2)
Quarter: 2014Q2

REPORT INFORMATION
  Report Type: Spontaneous
  Country: US (occurrence: US)
  Receive Date: 20140328
  Receipt Date: 20140424
  Transmission Date: 20141212
  Serious: Yes (Death, Hospitalization, Other)
  Sender: FDA-Public Use
  Company Number: US-PFIZER INC-2014084995

PATIENT
  Age: 73 Year
  Sex: Male
  Weight: 81.63 kg

DRUGS (2)
  1. LYRICA [Suspect]
     Indication: RESTLESS LEGS SYNDROME
     Dosage: 75 MG, DAILY AT BED TIME
     Dates: end: 201403
  2. AMARYL [Concomitant]
     Indication: DIABETES MELLITUS
     Dosage: 1 MG, DAILY

REACTIONS (5)
  - Off label use [Fatal]
  - Death [Fatal]
  - Dementia [Unknown]
  - Parkinson^s disease [Unknown]
  - Depression [Unknown]
